FAERS Safety Report 5491218-8 (Version None)
Quarter: 2007Q4

REPORT INFORMATION
  Report Type: 
  Country: None (occurrence: None)
  Receive Date: 20071019
  Receipt Date: 20071010
  Transmission Date: 20080405
  Serious: Yes (Death)
  Sender: FDA-Public Use
  Company Number: DE-GENENTECH-220117

PATIENT
  Sex: Female
  Weight: 72 kg

DRUGS (20)
  1. RITUXIMAB [Suspect]
     Indication: DIFFUSE LARGE B-CELL LYMPHOMA
     Dosage: 615 MG, UNK
     Route: 042
     Dates: start: 20050413, end: 20050527
  2. ETOPOSIDE [Suspect]
     Indication: DRUG USE FOR UNKNOWN INDICATION
     Dosage: 200 MG/M2, UNK
     Dates: start: 20050709, end: 20050709
  3. CYTARABINE [Suspect]
     Indication: DRUG USE FOR UNKNOWN INDICATION
     Dosage: 400 MG/M2, UNK
     Dates: start: 20050709, end: 20050709
  4. MELPHALAN [Suspect]
     Indication: DRUG USE FOR UNKNOWN INDICATION
     Dosage: 140 MG/M2, UNK
     Dates: start: 20050709, end: 20050709
  5. CARMUSTINE [Suspect]
     Indication: DRUG USE FOR UNKNOWN INDICATION
     Dosage: 300 MG/M2, UNK
     Dates: start: 20050709, end: 20050709
  6. MESNA [Concomitant]
     Indication: DRUG USE FOR UNKNOWN INDICATION
     Dates: start: 20050618, end: 20050622
  7. METOPROLOL SUCCINATE [Concomitant]
     Indication: DRUG USE FOR UNKNOWN INDICATION
  8. KALINOR [Concomitant]
     Indication: DRUG USE FOR UNKNOWN INDICATION
     Dates: start: 20050608, end: 20050622
  9. PANTOPRAZOLE SODIUM [Concomitant]
     Indication: DRUG USE FOR UNKNOWN INDICATION
     Dates: start: 20050608, end: 20050622
  10. CALCIUM [Concomitant]
     Indication: DRUG USE FOR UNKNOWN INDICATION
     Dates: start: 20050618, end: 20050622
  11. ACC [Concomitant]
     Indication: DRUG USE FOR UNKNOWN INDICATION
  12. OXOZEPAM [Concomitant]
     Indication: DRUG USE FOR UNKNOWN INDICATION
     Dates: start: 20050608
  13. TRAMADOL HCL [Concomitant]
     Indication: DRUG USE FOR UNKNOWN INDICATION
  14. VERGENTAN [Concomitant]
     Indication: DRUG USE FOR UNKNOWN INDICATION
     Dates: start: 20050618, end: 20050618
  15. HEMATOPOETIC PROGENITOR CELLS HUMAN [Concomitant]
     Indication: DRUG USE FOR UNKNOWN INDICATION
  16. IFOSFAMIDE [Concomitant]
     Indication: DRUG USE FOR UNKNOWN INDICATION
     Dates: start: 20050618, end: 20050622
  17. FORTECORTIN [Concomitant]
     Indication: DRUG USE FOR UNKNOWN INDICATION
     Dates: start: 20050618, end: 20050622
  18. METHOTREXAT [Concomitant]
     Indication: DRUG USE FOR UNKNOWN INDICATION
     Dates: start: 20050618, end: 20050618
  19. CYTARABINE [Concomitant]
     Indication: DRUG USE FOR UNKNOWN INDICATION
     Dates: start: 20050621, end: 20050622
  20. VM-26 [Concomitant]
     Indication: DRUG USE FOR UNKNOWN INDICATION
     Dates: start: 20050621, end: 20050622

REACTIONS (2)
  - ASPERGILLOSIS [None]
  - LUNG INFILTRATION [None]
